FAERS Safety Report 9333294 (Version 1)
Quarter: 2013Q2

REPORT INFORMATION
  Report Type: Spontaneous
  Country: VE (occurrence: VE)
  Receive Date: 20130606
  Receipt Date: 20130606
  Transmission Date: 20140414
  Serious: Yes (Other)
  Sender: FDA-Public Use
  Company Number: PHHY2013VE056026

PATIENT
  Age: 34 Year
  Sex: Female

DRUGS (4)
  1. ONBREZ [Suspect]
     Indication: CHRONIC OBSTRUCTIVE PULMONARY DISEASE
     Dosage: 150 UG, UNK
     Dates: start: 20130529, end: 20130529
  2. MOXEN//MOXIFLOXACIN HYDROCHLORIDE [Concomitant]
     Indication: ANTIBIOTIC THERAPY
     Dosage: 400 MG, UNK
     Route: 048
  3. ATAMEL [Concomitant]
     Indication: ANALGESIC THERAPY
     Dosage: 500 MG, UNK
     Route: 048
  4. AZITHROMYCIN [Concomitant]
     Dosage: 500 MG, UNK
     Route: 048

REACTIONS (3)
  - Loss of consciousness [Recovered/Resolved]
  - Dyskinesia [Recovered/Resolved]
  - Cough [Recovered/Resolved]
